FAERS Safety Report 5641033-7 (Version None)
Quarter: 2008Q1

REPORT INFORMATION
  Report Type: 
  Country: None (occurrence: None)
  Receive Date: 20080225
  Receipt Date: 20080212
  Transmission Date: 20080703
  Serious: Yes (Other)
  Sender: FDA-Public Use
  Company Number: GXKR2008GB01617

PATIENT
  Age: 61 Year
  Sex: Male

DRUGS (10)
  1. FOLIC ACID [Suspect]
     Dosage: 5 MG, QW, ORAL
     Route: 048
     Dates: end: 20080131
  2. HUMIRA [Suspect]
     Dosage: 40 MG, QW2, SUBCUTANEOUS
     Route: 058
     Dates: start: 20040812, end: 20080131
  3. METHOTREXATE [Suspect]
     Dosage: 10 MG, QW, ORAL
     Route: 048
     Dates: end: 20080131
  4. ACETYLSALICYLIC ACID SRT [Concomitant]
  5. GABAPENTIN [Concomitant]
  6. AMLODIPINE BESYLATE [Concomitant]
  7. LIPITOR [Concomitant]
  8. LOSEC (OMEPRAZOLE SODIUM) [Concomitant]
  9. MOBIC [Concomitant]
  10. RAMIPRIL [Concomitant]

REACTIONS (1)
  - PROSTATE CANCER [None]
